FAERS Safety Report 8849525 (Version 1)
Quarter: 2012Q4

REPORT INFORMATION
  Report Type: Spontaneous
  Country: US (occurrence: None)
  Receive Date: 20121018
  Receipt Date: 20121018
  Transmission Date: 20130627
  Serious: Yes (Disabling, Other)
  Sender: FDA-Public Use
  Company Number: None

PATIENT
  Age: 45 Year
  Sex: Female
  Weight: 54.43 kg

DRUGS (1)
  1. PROMETHAZINE DM [Suspect]
     Indication: COUGH
     Dosage: 1 teaspoonful by mouth
     Route: 048
     Dates: start: 20120927, end: 20120930

REACTIONS (3)
  - Drug ineffective [None]
  - Tongue eruption [None]
  - Dyspnoea [None]
